FAERS Safety Report 23997337 (Version 1)
Quarter: 2024Q2

REPORT INFORMATION
  Report Type: Spontaneous
  Country: US (occurrence: US)
  Receive Date: 20240621
  Receipt Date: 20240621
  Transmission Date: 20240716
  Serious: No
  Sender: FDA-Public Use
  Company Number: US-BRAEBURN-US-BRA-24-000213

PATIENT

DRUGS (2)
  1. BRIXADI [Suspect]
     Active Substance: BUPRENORPHINE
     Indication: Product used for unknown indication
     Dosage: 16 MILLIGRAM, UNK
     Route: 065
  2. BRIXADI [Suspect]
     Active Substance: BUPRENORPHINE
     Dosage: 24 MILLIGRAM, UNK
     Route: 065

REACTIONS (12)
  - Sluggishness [Unknown]
  - Diarrhoea [Unknown]
  - Rhinorrhoea [Unknown]
  - Cold sweat [Unknown]
  - Restlessness [Unknown]
  - Illness [Unknown]
  - Feeling abnormal [Unknown]
  - Sleep disorder [Unknown]
  - Asthenia [Unknown]
  - Malaise [Unknown]
  - Abdominal discomfort [Unknown]
  - Fatigue [Unknown]
